FAERS Safety Report 4738474-9 (Version None)
Quarter: 2005Q3

REPORT INFORMATION
  Report Type: 
  Country: None (occurrence: None)
  Receive Date: 20050803
  Receipt Date: 20050722
  Transmission Date: 20060218
  Serious: Yes (Life-Threatening, Disabling)
  Sender: FDA-Public Use
  Company Number: 212623

PATIENT
  Age: 53 Year
  Sex: Female

DRUGS (2)
  1. RITUXAN [Suspect]
     Indication: NON-HODGKIN'S LYMPHOMA
     Dosage: 540 MG, INTRAVENOUS; SEE IMAGE
     Route: 042
     Dates: start: 20041125, end: 20041125
  2. RITUXAN [Suspect]
     Indication: NON-HODGKIN'S LYMPHOMA
     Dosage: 540 MG, INTRAVENOUS; SEE IMAGE
     Route: 042
     Dates: start: 20050105, end: 20050105

REACTIONS (7)
  - B-CELL LYMPHOMA [None]
  - BLOOD PRESSURE DECREASED [None]
  - DISSEMINATED INTRAVASCULAR COAGULATION [None]
  - PYREXIA [None]
  - SHOCK [None]
  - TUMOUR LYSIS SYNDROME [None]
  - WHITE BLOOD CELL COUNT INCREASED [None]
